FAERS Safety Report 4449749-5 (Version None)
Quarter: 2004Q3

REPORT INFORMATION
  Report Type: 
  Country: None (occurrence: None)
  Receive Date: 20040913
  Receipt Date: 20040913
  Transmission Date: 20050211
  Serious: No
  Sender: FDA-Public Use
  Company Number: None

PATIENT
  Sex: Male

DRUGS (3)
  1. RITALIN [Suspect]
     Indication: ATTENTION DEFICIT/HYPERACTIVITY DISORDER
     Dosage: 20 MG SR TWICE TAB DAILY
  2. RITALIN [Suspect]
     Indication: FOETAL ALCOHOL SYNDROME
     Dosage: 20 MG SR TWICE TAB DAILY
  3. RITALIN [Suspect]
     Indication: TOURETTE'S DISORDER
     Dosage: 20 MG SR TWICE TAB DAILY

REACTIONS (3)
  - AGGRESSION [None]
  - IMPULSIVE BEHAVIOUR [None]
  - PHARMACEUTICAL PRODUCT COMPLAINT [None]
